FAERS Safety Report 17775183 (Version 1)
Quarter: 2020Q2

REPORT INFORMATION
  Report Type: Spontaneous
  Country: US (occurrence: US)
  Receive Date: 20200513
  Receipt Date: 20200513
  Transmission Date: 20200714
  Serious: Yes (Hospitalization)
  Sender: FDA-Public Use
  Company Number: None

PATIENT
  Sex: Male
  Weight: 89.6 kg

DRUGS (3)
  1. BENDAMUSTINE HYDROCHLORIDE 188MG [Suspect]
     Active Substance: BENDAMUSTINE HYDROCHLORIDE
  2. RITUXIMAB 780MG [Suspect]
     Active Substance: RITUXIMAB
  3. ACALABRUTINIB 200MG [Suspect]
     Active Substance: ACALABRUTINIB

REACTIONS (14)
  - Body temperature increased [None]
  - Rash maculo-papular [None]
  - Rash [None]
  - Erythema [None]
  - Hypotension [None]
  - Chest discomfort [None]
  - Malaise [None]
  - Therapy interrupted [None]
  - Gram stain positive [None]
  - False positive investigation result [None]
  - Infusion related reaction [None]
  - Chills [None]
  - Tachycardia [None]
  - Feeling abnormal [None]

NARRATIVE: CASE EVENT DATE: 20200430
